FAERS Safety Report 7244925-0 (Version None)
Quarter: 2011Q1

REPORT INFORMATION
  Report Type: 
  Country: None (occurrence: None)
  Receive Date: 20110126
  Receipt Date: 20110121
  Transmission Date: 20110831
  Serious: Yes (Other)
  Sender: FDA-Public Use
  Company Number: IN-ELI_LILLY_AND_COMPANY-IN201101005397

PATIENT
  Sex: Male

DRUGS (2)
  1. HUMALOG MIX 50/50 [Suspect]
     Indication: DIABETES MELLITUS
     Dosage: 6 U, 2/D
     Route: 058
     Dates: start: 20110117
  2. HUMALOG MIX 50/50 [Suspect]
     Dosage: 18 U, OTHER
     Route: 058
     Dates: start: 20110120, end: 20110120

REACTIONS (2)
  - FALL [None]
  - HYPOGLYCAEMIC UNCONSCIOUSNESS [None]
